FAERS Safety Report 23584610 (Version 2)
Quarter: 2024Q1

REPORT INFORMATION
  Report Type: Report from Study
  Country: US (occurrence: US)
  Receive Date: 20240301
  Receipt Date: 20240314
  Transmission Date: 20240410
  Serious: Yes (Other)
  Sender: FDA-Public Use
  Company Number: US-ABBVIE-5659236

PATIENT
  Sex: Female
  Weight: 81 kg

DRUGS (4)
  1. HUMIRA [Suspect]
     Active Substance: ADALIMUMAB
     Indication: Rheumatoid arthritis
     Dosage: FORM STRENGTH: 40 MG
     Route: 058
     Dates: start: 20231202
  2. HUMIRA [Suspect]
     Active Substance: ADALIMUMAB
     Dosage: DOSE INCREASED?FORM STRENGTH: 40 MG
     Route: 058
     Dates: start: 20230302, end: 20231201
  3. NOVAVAX COVID-19 VACCINE, ADJUVANTED [Suspect]
     Active Substance: NVX-COV2373
     Indication: COVID-19 immunisation
     Dosage: TIME INTERVAL: TOTAL: ONE IN ONCE, COVID VACCINE
     Route: 030
     Dates: start: 202311, end: 202311
  4. INFLUENZA VIRUS VACCINE [Suspect]
     Active Substance: INFLUENZA VIRUS VACCINE
     Indication: Influenza immunisation
     Dosage: TIME INTERVAL: TOTAL
     Route: 065
     Dates: start: 2024, end: 2024

REACTIONS (2)
  - Autoimmune eye disorder [Recovering/Resolving]
  - Rheumatoid arthritis [Not Recovered/Not Resolved]
